FAERS Safety Report 8808460 (Version 2)
Quarter: 2013Q1

REPORT INFORMATION
  Report Type: Spontaneous
  Country: US (occurrence: US)
  Receive Date: 20120926
  Receipt Date: 20130208
  Transmission Date: 20140127
  Serious: Yes (Hospitalization, Other)
  Sender: FDA-Public Use
  Company Number: US-ELI_LILLY_AND_COMPANY-US201209004346

PATIENT
  Sex: Female

DRUGS (4)
  1. HUMALOG 25% LISPRO, 75% NPL [Suspect]
     Dosage: 100 U, QD
     Dates: start: 2010
  2. HUMALOG 25% LISPRO, 75% NPL [Suspect]
     Dosage: 12 U, QD
     Dates: start: 201209
  3. COUMADIN [Concomitant]
     Dosage: UNK, UNKNOWN
  4. ANTIHYPERTENSIVES [Concomitant]
     Dosage: UNK, UNKNOWN

REACTIONS (4)
  - Pneumonia aspiration [Recovered/Resolved]
  - Cardiac failure chronic [Unknown]
  - Glycosylated haemoglobin increased [Unknown]
  - Upper respiratory tract infection [Unknown]
